FAERS Safety Report 5795731-5 (Version None)
Quarter: 2008Q2

REPORT INFORMATION
  Report Type: 
  Country: None (occurrence: None)
  Receive Date: 20080630
  Receipt Date: 20080219
  Transmission Date: 20081010
  Serious: No
  Sender: FDA-Public Use
  Company Number: US-BOEHRINGER INGELHEIM GMBH, GERMANY-2007-BP-23817BP

PATIENT
  Sex: Male
  Weight: 93 kg

DRUGS (3)
  1. MIRAPEX [Suspect]
     Indication: PARKINSON'S DISEASE
     Dates: start: 20020716, end: 20020901
  2. MIRAPEX [Suspect]
     Dates: start: 20031010, end: 20031103
  3. MIRAPEX [Suspect]
     Dates: start: 20040206, end: 20050601

REACTIONS (6)
  - COMPULSIVE SHOPPING [None]
  - DEPRESSION [None]
  - HYPERSEXUALITY [None]
  - LIBIDO INCREASED [None]
  - OBSESSIVE-COMPULSIVE DISORDER [None]
  - PATHOLOGICAL GAMBLING [None]
